FAERS Safety Report 4342760-4 (Version None)
Quarter: 2004Q2

REPORT INFORMATION
  Report Type: 
  Country: None (occurrence: None)
  Receive Date: 20040415
  Receipt Date: 20041113
  Transmission Date: 20050107
  Serious: Yes (Death, Hospitalization)
  Sender: FDA-Public Use
  Company Number: WAES 96120988

PATIENT
  Age: 2 Day
  Sex: Male

DRUGS (6)
  1. INDOCIN I.V. [Suspect]
     Indication: PATENT DUCTUS ARTERIOSUS
     Dosage: 180 MICROGM DAILY IV
     Route: 042
     Dates: start: 19961019, end: 19961019
  2. CEFOTAXIME SODIUM [Concomitant]
  3. DOPAMINE HCI [Concomitant]
  4. GENTAMICINSO4 [Concomitant]
  5. PHENOBARBITAL TAB [Concomitant]
  6. SODIUM BICARBONATE [Concomitant]

REACTIONS (6)
  - ANURIA [None]
  - CARDIAC FAILURE [None]
  - CONDITION AGGRAVATED [None]
  - HAEMORRHAGE INTRACRANIAL [None]
  - NEONATAL DISORDER [None]
  - OLIGURIA [None]
